FAERS Safety Report 17819095 (Version 1)
Quarter: 2020Q2

REPORT INFORMATION
  Report Type: Spontaneous
  Country: GB (occurrence: GB)
  Receive Date: 20200523
  Receipt Date: 20200523
  Transmission Date: 20200714
  Serious: Yes (Other)
  Sender: FDA-Public Use
  Company Number: GB-ACCORD-183044

PATIENT
  Age: 67 Year
  Sex: Female
  Weight: 70.59 kg

DRUGS (7)
  1. TIMODINE [Concomitant]
     Dates: start: 20200504
  2. FUROSEMIDE. [Suspect]
     Active Substance: FUROSEMIDE
     Indication: JOINT SWELLING
     Route: 048
  3. FEXOFENADINE [Concomitant]
     Active Substance: FEXOFENADINE HYDROCHLORIDE
     Dosage: EVERY DAY WHEN REQUIRED.
     Dates: start: 20200501
  4. CHLORPHENAMINE/CHLORPHENAMINE MALEATE/CHLORPHENAMINE RESINATE/CHLORPHENAMINE TANNATE [Concomitant]
     Active Substance: CHLORPHENIRAMINE
     Dosage: 4-6 HOURLY, WHEN REQUIRED.
     Dates: start: 20200507
  5. FENBID [Concomitant]
     Active Substance: IBUPROFEN
     Dates: start: 20200428
  6. HYDROCORTISONE. [Concomitant]
     Active Substance: HYDROCORTISONE
     Dosage: FOR 5-7 DAYS
     Dates: start: 20200501
  7. DOXYCYCLINE. [Concomitant]
     Active Substance: DOXYCYCLINE
     Dosage: 2 INITIALLY, THEN 1 EVERY DAY
     Dates: start: 20200406

REACTIONS (1)
  - Pemphigoid [Recovering/Resolving]

NARRATIVE: CASE EVENT DATE: 20200427
